FAERS Safety Report 13705676 (Version 2)
Quarter: 2017Q3

REPORT INFORMATION
  Report Type: Spontaneous
  Country: DE (occurrence: DE)
  Receive Date: 20170630
  Receipt Date: 20170712
  Transmission Date: 20171127
  Serious: Yes (Hospitalization)
  Sender: FDA-Public Use
  Company Number: DE-BAYER-2017-121937

PATIENT
  Age: 47 Year
  Sex: Female

DRUGS (1)
  1. MIRENA [Suspect]
     Active Substance: LEVONORGESTREL
     Indication: CONTRACEPTION
     Dosage: 20 MCG/24HR, CONT
     Route: 015
     Dates: start: 20170608

REACTIONS (5)
  - Photopsia [Recovered/Resolved]
  - Ocular discomfort [Recovered/Resolved]
  - Brain stem ischaemia [Recovered/Resolved]
  - Facial paralysis [Recovered/Resolved]
  - Hemianaesthesia [Recovered/Resolved]

NARRATIVE: CASE EVENT DATE: 20170610
